FAERS Safety Report 7805521-7 (Version None)
Quarter: 2011Q4

REPORT INFORMATION
  Report Type: 
  Country: None (occurrence: None)
  Receive Date: 20111010
  Receipt Date: 20111006
  Transmission Date: 20120403
  Serious: Yes (Death, Other)
  Sender: FDA-Public Use
  Company Number: US-ABBOTT-07P-163-0377570-00

PATIENT
  Sex: Male

DRUGS (12)
  1. MERCAPTOPURINE [Suspect]
     Indication: INFLAMMATORY BOWEL DISEASE
  2. ADALIMUMAB [Suspect]
     Indication: IRRITABLE BOWEL SYNDROME
     Dosage: 1 EVERY 2 WEEKS FOR 15 DOSES
     Route: 050
     Dates: start: 20061101, end: 20070601
  3. ADALIMUMAB [Suspect]
     Indication: INFLAMMATORY BOWEL DISEASE
  4. ADALIMUMAB [Suspect]
     Indication: COLITIS
     Dates: start: 20061101
  5. INFLIXIMAB [Suspect]
     Indication: INFLAMMATORY BOWEL DISEASE
  6. ASACOL [Concomitant]
     Indication: IRRITABLE BOWEL SYNDROME
  7. ADALIMUMAB [Suspect]
     Indication: COLITIS ULCERATIVE
  8. MERCAPTOPURINE [Suspect]
     Indication: COLITIS ULCERATIVE
     Dates: start: 19991001, end: 20070401
  9. ASACOL [Concomitant]
     Indication: COLITIS
  10. PREDNISONE [Concomitant]
     Indication: INFLAMMATORY BOWEL DISEASE
  11. PREDNISONE [Concomitant]
     Indication: COLITIS ULCERATIVE
  12. INFLIXIMAB [Suspect]
     Indication: COLITIS ULCERATIVE
     Dosage: 19 INJECTIONS OVER 42 MONTHS
     Route: 042
     Dates: start: 20020701, end: 20060307

REACTIONS (8)
  - EMOTIONAL DISTRESS [None]
  - HEPATOSPLENIC T-CELL LYMPHOMA [None]
  - IRRITABLE BOWEL SYNDROME [None]
  - ANXIETY [None]
  - INJURY [None]
  - ANAEMIA [None]
  - FEAR [None]
  - PAIN [None]
